FAERS Safety Report 12382582 (Version 1)
Quarter: 2016Q2

REPORT INFORMATION
  Report Type: Spontaneous
  Country: GB (occurrence: GB)
  Receive Date: 20160518
  Receipt Date: 20160518
  Transmission Date: 20160815
  Serious: Yes (Other)
  Sender: FDA-Public Use
  Company Number: GB-SA-2016SA094092

PATIENT
  Age: 68 Year
  Sex: Male
  Weight: 93 kg

DRUGS (20)
  1. LEVOTHYROXINE. [Concomitant]
     Active Substance: LEVOTHYROXINE
     Route: 065
     Dates: start: 20160111
  2. SERTRALINE [Concomitant]
     Active Substance: SERTRALINE HYDROCHLORIDE
     Route: 065
     Dates: start: 20160111, end: 20160502
  3. ZOPICLONE [Concomitant]
     Active Substance: ZOPICLONE
     Dosage: TAKE ONE AT NIGHT AS REQUIRED
     Route: 065
     Dates: start: 20160420
  4. CO-AMOXICLAV [Concomitant]
     Active Substance: AMOXICILLIN\CLAVULANIC ACID
     Route: 065
     Dates: start: 20160215, end: 20160222
  5. PROGRAF [Concomitant]
     Active Substance: TACROLIMUS\TACROLIMUS ANHYDROUS
     Dosage: EACH MORNING
     Route: 065
     Dates: start: 20160111
  6. PROPRANOLOL [Concomitant]
     Active Substance: PROPRANOLOL\PROPRANOLOL HYDROCHLORIDE
     Dosage: ONE IN MORNING AND ONE AT LUNCHTIME
     Route: 065
     Dates: start: 20160111
  7. QUININE [Concomitant]
     Active Substance: QUININE
     Dosage: AT NIGHT
     Route: 065
     Dates: start: 20160229
  8. ORAL REHYDRATION SALT [Concomitant]
     Route: 065
     Dates: start: 20160315, end: 20160316
  9. PREDNISOLONE. [Concomitant]
     Active Substance: PREDNISOLONE
     Dosage: WITH FOOD
     Route: 065
     Dates: start: 20160208, end: 20160213
  10. SILDENAFIL. [Concomitant]
     Active Substance: SILDENAFIL
     Dosage: USE AS DIRECTED APPROX 1 HOUR BEFORE SEXUAL ACT...
     Route: 065
     Dates: start: 20160111
  11. FENTANYL. [Concomitant]
     Active Substance: FENTANYL
     Route: 062
     Dates: start: 20160111
  12. SALBUTAMOL [Concomitant]
     Active Substance: ALBUTEROL
     Route: 055
     Dates: start: 20160111
  13. FEXOFENADINE HYDROCHLORIDE. [Suspect]
     Active Substance: FEXOFENADINE HYDROCHLORIDE
     Route: 065
     Dates: start: 20160503
  14. GABAPENTIN. [Concomitant]
     Active Substance: GABAPENTIN
     Route: 065
     Dates: start: 20160111
  15. LORATADINE. [Concomitant]
     Active Substance: LORATADINE
     Route: 065
     Dates: start: 20160111, end: 20160420
  16. MESALAMINE. [Concomitant]
     Active Substance: MESALAMINE
     Dosage: FOUR DAILY (4.8MG DAILY)
     Route: 065
     Dates: start: 20160111
  17. MIGRALEVE [Concomitant]
     Active Substance: ACETAMINOPHEN\BUCLIZINE HYDROCHLORIDE\CODEINE
     Dosage: USE AS DIRECTED
     Route: 065
     Dates: start: 20160111
  18. AMOXICILLIN. [Concomitant]
     Active Substance: AMOXICILLIN
     Route: 065
     Dates: start: 20160208, end: 20160215
  19. AVEENO NOS [Concomitant]
     Active Substance: DIMETHICONE OR HOMOSALATE\OCTINOXATE\OCTISALATE\TITANIUM DIOXIDE
     Dosage: USE AS DIRECTED
     Route: 065
     Dates: start: 20160125
  20. URSODEOXYCHOLIC ACID [Concomitant]
     Active Substance: URSODIOL
     Route: 065
     Dates: start: 20160111

REACTIONS (3)
  - Abdominal distension [Recovered/Resolved]
  - Myalgia [Recovered/Resolved]
  - Restless legs syndrome [Recovered/Resolved]

NARRATIVE: CASE EVENT DATE: 20160503
